FAERS Safety Report 16529742 (Version 1)
Quarter: 2019Q3

REPORT INFORMATION
  Report Type: Other
  Country: GB (occurrence: GB)
  Receive Date: 20190704
  Receipt Date: 20190704
  Transmission Date: 20191004
  Serious: No
  Sender: FDA-Public Use
  Company Number: GB-LUPIN PHARMACEUTICALS INC.-2019-00941

PATIENT
  Age: 80 Year
  Sex: Female
  Weight: 98 kg

DRUGS (35)
  1. SIMVASTATIN. [Suspect]
     Active Substance: SIMVASTATIN
     Indication: PRODUCT USED FOR UNKNOWN INDICATION
     Dosage: UNK
     Route: 065
     Dates: start: 20190124
  2. MIRTAZAPINE. [Concomitant]
     Active Substance: MIRTAZAPINE
     Indication: ILL-DEFINED DISORDER
     Dosage: 30MG ON
     Route: 065
     Dates: start: 20180928
  3. AMOXIL                             /00249601/ [Concomitant]
     Active Substance: AMOXICILLIN
     Indication: ILL-DEFINED DISORDER
     Dosage: TAKE ONE 2 TIMES/DAY
     Route: 065
     Dates: start: 20181219, end: 20181226
  4. PARACETAMOL [Concomitant]
     Active Substance: ACETAMINOPHEN
     Indication: ILL-DEFINED DISORDER
     Dosage: UNK UNK, QID
     Route: 065
     Dates: start: 20180523
  5. NICORANDIL [Concomitant]
     Active Substance: NICORANDIL
     Indication: ILL-DEFINED DISORDER
     Dosage: TAKE ONE TWICE DAILY
     Route: 065
     Dates: start: 20180523
  6. CREON [Concomitant]
     Active Substance: PANCRELIPASE AMYLASE\PANCRELIPASE LIPASE\PANCRELIPASE PROTEASE
     Indication: ILL-DEFINED DISORDER
     Dosage: TAKE TWO CAPSULES 3 TIMES A DAY
     Route: 065
     Dates: start: 20180523
  7. LAXIDO [Concomitant]
     Active Substance: POLYETHYLENE GLYCOL 3350\POTASSIUM CHLORIDE\SODIUM BICARBONATE\SODIUM CHLORIDE
     Indication: ILL-DEFINED DISORDER
     Dosage: USE AS DIRECTED
     Route: 065
     Dates: start: 20180702
  8. GLICLAZIDE [Concomitant]
     Active Substance: GLICLAZIDE
     Indication: ILL-DEFINED DISORDER
     Dosage: ONE IN THE MORNING
     Route: 065
     Dates: start: 20180523
  9. MOVICOL [Concomitant]
     Active Substance: POLYETHYLENE GLYCOL 3350\POTASSIUM CHLORIDE\SODIUM BICARBONATE\SODIUM CHLORIDE
     Indication: ILL-DEFINED DISORDER
     Dosage: TAKE ONE SACHET BD
     Route: 065
     Dates: start: 20190122
  10. HALOPERIDOL. [Concomitant]
     Active Substance: HALOPERIDOL
     Indication: ILL-DEFINED DISORDER
     Dosage: GIVE 1.5MG TO 5MG BY SUBCUTANEOUS INJECTION WHE...
     Route: 065
     Dates: start: 20190118, end: 20190125
  11. GABAPENTIN. [Concomitant]
     Active Substance: GABAPENTIN
     Indication: ILL-DEFINED DISORDER
     Dosage: TAKE 2 TABLETS THREE TIMES PER DAY
     Route: 065
     Dates: start: 20180523
  12. HYDRALAZINE [Concomitant]
     Active Substance: HYDRALAZINE HYDROCHLORIDE
     Indication: ILL-DEFINED DISORDER
     Dosage: TAKE HALF A TABLET, THREE TIMES A DAY
     Route: 065
     Dates: start: 20180523
  13. MIDAZOLAM [Concomitant]
     Active Substance: MIDAZOLAM HYDROCHLORIDE
     Indication: ILL-DEFINED DISORDER
     Dosage: USE 2.5MG TO 5MG  IF NEEDED UPTO 80MG IN A DAY
     Route: 065
     Dates: start: 20190118
  14. INSUMAN BASAL [Concomitant]
     Active Substance: INSULIN HUMAN
     Indication: ILL-DEFINED DISORDER
     Dosage: USE AS DIRECTED
     Route: 065
     Dates: start: 20180523
  15. MATRIFEN [Concomitant]
     Active Substance: FENTANYL
     Indication: ILL-DEFINED DISORDER
     Dosage: APPLY ONE AS DIRECTED AND REPLACE EVERY 72 HOURS
     Route: 065
     Dates: start: 20180523, end: 20181119
  16. BISOPROLOL [Concomitant]
     Active Substance: BISOPROLOL
     Indication: ILL-DEFINED DISORDER
     Dosage: 2.5MG OD
     Route: 065
     Dates: start: 20180523
  17. NITROLINGUAL [Concomitant]
     Active Substance: NITROGLYCERIN
     Indication: ILL-DEFINED DISORDER
     Dosage: ONE PUFF AS NEEDED
     Route: 065
     Dates: start: 20180523
  18. COLECALCIFEROL [Concomitant]
     Active Substance: CHOLECALCIFEROL
     Indication: ILL-DEFINED DISORDER
     Dosage: TAKE ONE CAPSULE A MONTH
     Route: 065
     Dates: start: 20180523
  19. CASSIA ALEXANDRINA [Concomitant]
     Indication: ILL-DEFINED DISORDER
     Dosage: TAKE 1 OR 2 AT NIGHT
     Route: 065
     Dates: start: 20180523
  20. OXYCODONE HYDROCHLORIDE. [Concomitant]
     Active Substance: OXYCODONE HYDROCHLORIDE
     Indication: ILL-DEFINED DISORDER
     Dosage: USE 2.5 MG SUBCUTANEOUS EVERY 4 HRS IF NEEDED
     Route: 065
     Dates: start: 20190117
  21. WARFARIN SODIUM. [Concomitant]
     Active Substance: WARFARIN SODIUM
     Indication: ILL-DEFINED DISORDER
     Dosage: AS PER INR
     Route: 065
     Dates: start: 20180523
  22. HYPROMELLOSE [Concomitant]
     Active Substance: HYPROMELLOSES
     Indication: ILL-DEFINED DISORDER
     Dosage: PUT ONE DROP IN BOTH EYES 4 TIMES A DAY
     Route: 065
     Dates: start: 20181119
  23. HYOSCINE BUTYLBROMIDE [Concomitant]
     Active Substance: BUTYLSCOPOLAMINE BROMIDE
     Indication: ILL-DEFINED DISORDER
     Dosage: GIVE 20MG BY SUBCUTANEOUS INJECTION IF NEEDED, ...
     Route: 065
     Dates: start: 20190118, end: 20190125
  24. LANSOPRAZOLE. [Concomitant]
     Active Substance: LANSOPRAZOLE
     Indication: ILL-DEFINED DISORDER
     Dosage: TAKE ONE TWICE DAILY
     Route: 065
     Dates: start: 20180523
  25. DOCUSATE SODIUM. [Concomitant]
     Active Substance: DOCUSATE SODIUM
     Indication: ILL-DEFINED DISORDER
     Dosage: TAKE 2 TWICE DAILY
     Route: 065
     Dates: start: 20181220, end: 20190119
  26. METOCLOPRAMIDE. [Concomitant]
     Active Substance: METOCLOPRAMIDE
     Indication: ILL-DEFINED DISORDER
     Dosage: 10MG TID IF NEEDED
     Route: 065
     Dates: start: 20190122
  27. LEVOMEPROMAZINE [Concomitant]
     Active Substance: LEVOMEPROMAZINE
     Indication: ILL-DEFINED DISORDER
     Dosage: 1/4 OF A TABLET AT NIGHT
     Route: 065
     Dates: start: 20180504
  28. FERROUS FUMARATE [Concomitant]
     Active Substance: FERROUS FUMARATE
     Indication: ILL-DEFINED DISORDER
     Dosage: TAKE ONE TWICE PER DAY
     Route: 065
     Dates: start: 20180523, end: 20181119
  29. SALBUTAMOL [Concomitant]
     Active Substance: ALBUTEROL
     Indication: ILL-DEFINED DISORDER
     Dosage: 1 PUFF PRN
     Route: 065
     Dates: start: 20190122
  30. OMEPRAZOLE. [Concomitant]
     Active Substance: OMEPRAZOLE
     Indication: ILL-DEFINED DISORDER
     Dosage: 20MG BD
     Route: 065
     Dates: start: 20190122
  31. SHORTEC [Concomitant]
     Active Substance: OXYCODONE HYDROCHLORIDE
     Indication: ILL-DEFINED DISORDER
     Dosage: 5MLS AS REQUIRED UPTO 30MLS A DAY
     Route: 065
     Dates: start: 20180928
  32. CHEMYDUR [Concomitant]
     Active Substance: ISOSORBIDE MONONITRATE
     Indication: ILL-DEFINED DISORDER
     Dosage: TAKE ONE DAILY
     Route: 065
     Dates: start: 20180523
  33. BUMETANIDE. [Concomitant]
     Active Substance: BUMETANIDE
     Indication: ILL-DEFINED DISORDER
     Dosage: 3MG IN THE MORNING, 2MG AFTERNOON
     Route: 065
     Dates: start: 20180523
  34. CLOTRIMAZOLE. [Concomitant]
     Active Substance: CLOTRIMAZOLE
     Indication: ILL-DEFINED DISORDER
     Dosage: USE 3 TIMES A DAY IF NEEDED
     Route: 065
     Dates: start: 20190122
  35. SPIRONOLACTONE. [Concomitant]
     Active Substance: SPIRONOLACTONE
     Indication: ILL-DEFINED DISORDER
     Dosage: TAKE 1 A TABLET IN THE MORNING
     Route: 065
     Dates: start: 20180523

REACTIONS (1)
  - Rash macular [Recovered/Resolved]

NARRATIVE: CASE EVENT DATE: 20190124
